FAERS Safety Report 9661976 (Version 2)
Quarter: 2013Q4

REPORT INFORMATION
  Report Type: Spontaneous
  Country: US (occurrence: US)
  Receive Date: 20131031
  Receipt Date: 20131031
  Transmission Date: 20140711
  Serious: No
  Sender: FDA-Public Use
  Company Number: US-PURDUE-USA-2010-0047779

PATIENT
  Sex: Female

DRUGS (5)
  1. OXYCONTIN (NDA 22-272) [Suspect]
     Indication: PAIN
     Dosage: 60 MG, UNK
     Dates: start: 20100827, end: 20100830
  2. OXYCODONE HYDROCHLORIDE (SIMILAR TO NDA 20-553) [Concomitant]
     Indication: PAIN
     Dosage: 20 MG, Q4H
     Route: 048
     Dates: start: 20100715
  3. PROMETHAZINE [Concomitant]
     Indication: NAUSEA
     Dosage: 1 SUPP., Q6H PRN
     Dates: start: 20100426
  4. PROMETHAZINE [Concomitant]
     Indication: VOMITING
  5. AMITIZA [Concomitant]
     Indication: IRRITABLE BOWEL SYNDROME
     Dosage: 24 MG, BID
     Dates: start: 20100719

REACTIONS (8)
  - Drug withdrawal syndrome [Unknown]
  - Medication residue present [Unknown]
  - Abdominal discomfort [Unknown]
  - Drug ineffective [Unknown]
  - Constipation [Unknown]
  - Product gel formation [Unknown]
  - Inadequate analgesia [Unknown]
  - Abdominal pain upper [Unknown]
